FAERS Safety Report 10648416 (Version 3)
Quarter: 2015Q2

REPORT INFORMATION
  Report Type: Report from Study
  Country: US (occurrence: US)
  Receive Date: 20141212
  Receipt Date: 20150629
  Transmission Date: 20150821
  Serious: Yes (Hospitalization)
  Sender: FDA-Public Use
  Company Number: US-SA-2014SA168245

PATIENT
  Age: 66 Year
  Sex: Female
  Weight: 77.7 kg

DRUGS (4)
  1. MLN0128 [Suspect]
     Active Substance: SAPANISERTIB
     Indication: NEUROENDOCRINE TUMOUR
     Route: 048
     Dates: start: 20140910, end: 20140910
  2. MLN0128 [Suspect]
     Active Substance: SAPANISERTIB
     Indication: NEUROENDOCRINE TUMOUR
     Route: 065
     Dates: start: 20141003, end: 20141003
  3. ZIV-AFLIBERCEPT [Suspect]
     Active Substance: ZIV-AFLIBERCEPT
     Indication: NEUROENDOCRINE TUMOUR
     Dosage: DOSE-3 MG/KG IV OVER 60 MIN ON DAYS 1 AND 15
     Route: 042
     Dates: start: 20140910, end: 20140910
  4. ZIV-AFLIBERCEPT [Suspect]
     Active Substance: ZIV-AFLIBERCEPT
     Indication: NEUROENDOCRINE TUMOUR
     Dosage: TOTAL DOSE ADMINISTERED DURING THIS COURSE WAS 518 MG
     Route: 042
     Dates: start: 20140924, end: 20140924

REACTIONS (7)
  - Vomiting [Recovered/Resolved]
  - Abdominal pain [Recovering/Resolving]
  - Nausea [Recovered/Resolved]
  - Rash maculo-papular [Recovering/Resolving]
  - Fatigue [Recovering/Resolving]
  - Decreased appetite [Recovering/Resolving]
  - Pancreatitis [Recovered/Resolved]

NARRATIVE: CASE EVENT DATE: 20140924
